FAERS Safety Report 8015609-6 (Version None)
Quarter: 2011Q4

REPORT INFORMATION
  Report Type: 
  Country: None (occurrence: None)
  Receive Date: 20111230
  Receipt Date: 20111222
  Transmission Date: 20120403
  Serious: Yes (Hospitalization)
  Sender: FDA-Public Use
  Company Number: US-BAYER-2011-034544

PATIENT
  Age: 43 Year
  Sex: Female
  Weight: 61.224 kg

DRUGS (4)
  1. YASMIN [Suspect]
     Indication: MENSTRUAL DISORDER
     Dosage: UNK
     Dates: start: 20070201, end: 20070401
  2. YAZ [Suspect]
     Indication: MENSTRUAL DISORDER
     Dosage: UNK
     Dates: start: 20070201, end: 20070501
  3. IBUPROFEN [Concomitant]
     Dosage: 600 MG, TID
     Route: 048
  4. SOMA [Concomitant]
     Dosage: 350 MG, BID
     Route: 048

REACTIONS (7)
  - DEFORMITY [None]
  - ANXIETY [None]
  - PELVIC VENOUS THROMBOSIS [None]
  - ANHEDONIA [None]
  - THROMBOSIS [None]
  - PAIN [None]
  - PULMONARY EMBOLISM [None]
